FAERS Safety Report 23617076 (Version 2)
Quarter: 2024Q2

REPORT INFORMATION
  Report Type: Spontaneous
  Country: US (occurrence: US)
  Receive Date: 20240311
  Receipt Date: 20240408
  Transmission Date: 20240716
  Serious: Yes (Death)
  Sender: FDA-Public Use
  Company Number: US-APELLIS PHARMACEUTICALS-APL-2024-004231

PATIENT
  Age: 88 Year
  Sex: Female

DRUGS (1)
  1. SYFOVRE [Suspect]
     Active Substance: PEGCETACOPLAN
     Indication: Dry age-related macular degeneration
     Dosage: 15 MILLIGRAM EVERY 28 DAYS
     Dates: start: 20231215, end: 20231215

REACTIONS (1)
  - Death [Fatal]

NARRATIVE: CASE EVENT DATE: 20240205
